FAERS Safety Report 4673847-4 (Version None)
Quarter: 2005Q2

REPORT INFORMATION
  Report Type: 
  Country: None (occurrence: None)
  Receive Date: 20050524
  Receipt Date: 20050504
  Transmission Date: 20051028
  Serious: Yes (Hospitalization)
  Sender: FDA-Public Use
  Company Number: CEL-2005-00596-SLO

PATIENT
  Age: 56 Year
  Sex: Male

DRUGS (7)
  1. ZAROXOLYN [Suspect]
     Indication: PANCREATITIS
     Dosage: 5MG, PO.
     Dates: start: 20041023, end: 20041023
  2. FUROSEMIDE [Suspect]
     Indication: PANCREATITIS
     Dosage: 10MG/ML, IV.
     Dates: start: 20041022, end: 20041024
  3. EDECRIN [Suspect]
     Indication: PANCREATITIS
     Dosage: 50MG, IV.
     Route: 042
     Dates: start: 20041022, end: 20041022
  4. NEBCIN [Suspect]
     Indication: PANCREATITIS
     Dosage: 200MG, PO.
     Dates: start: 20041022, end: 20041022
  5. FRAGMIN [Concomitant]
  6. MERONEM (MEROPENEM) [Concomitant]
  7. PANTOLOC (PANTOPRAZOLE) [Concomitant]

REACTIONS (6)
  - BLOOD CREATINE INCREASED [None]
  - DEAFNESS NEUROSENSORY [None]
  - HAEMODIALYSIS [None]
  - MULTI-ORGAN FAILURE [None]
  - PANCREATITIS [None]
  - RENAL IMPAIRMENT [None]
